FAERS Safety Report 14505692 (Version 1)
Quarter: 2018Q1

REPORT INFORMATION
  Report Type: Spontaneous
  Country: SA (occurrence: GB)
  Receive Date: 20180208
  Receipt Date: 20180208
  Transmission Date: 20180509
  Serious: Yes (Hospitalization, Other)
  Sender: FDA-Public Use
  Company Number: SA-MYLANLABS-2018M1007848

PATIENT
  Age: 18 Day
  Sex: Male
  Weight: 3.7 kg

DRUGS (2)
  1. ALPROSTADIL. [Suspect]
     Active Substance: ALPROSTADIL
     Dosage: 0.04 MICROG/KG/MINUTE ON DAY 15; THE DOSE WAS FURTHER REDUCED ON DAY 49
     Route: 050
  2. ALPROSTADIL. [Suspect]
     Active Substance: ALPROSTADIL
     Indication: PATENT DUCTUS ARTERIOSUS
     Dosage: 0.05 MICROG/KG/MINUTE STATED ON DAY 3; DOSE WAS REDUCED ON DAY 15
     Route: 050

REACTIONS (1)
  - Infantile cortical hyperostosis [Not Recovered/Not Resolved]
